FAERS Safety Report 19515837 (Version 2)
Quarter: 2021Q3

REPORT INFORMATION
  Report Type: Report from Study
  Country: GB (occurrence: GB)
  Receive Date: 20210710
  Receipt Date: 20210722
  Transmission Date: 20211014
  Serious: Yes (Other)
  Sender: FDA-Public Use
  Company Number: NVSC2021GB151833

PATIENT
  Sex: Female

DRUGS (1)
  1. OMNITROPE [Suspect]
     Active Substance: SOMATROPIN
     Indication: HYPOPITUITARISM
     Dosage: 2 MG, QD
     Route: 058
     Dates: start: 20210331

REACTIONS (3)
  - Hypoaesthesia [Unknown]
  - Injection site pain [Unknown]
  - Product administration error [Unknown]
